FAERS Safety Report 21327991 (Version 1)
Quarter: 2022Q3

REPORT INFORMATION
  Report Type: Spontaneous
  Country: BR (occurrence: None)
  Receive Date: 20220913
  Receipt Date: 20220913
  Transmission Date: 20221026
  Serious: Yes (Other)
  Sender: FDA-Public Use
  Company Number: BR-ROCHE-3176843

PATIENT
  Sex: Male

DRUGS (9)
  1. RIVOTRIL [Suspect]
     Active Substance: CLONAZEPAM
     Indication: Sleep apnoea syndrome
     Dosage: STARTED RIVOTRIL APPROXIMATELY MORE THAN 5 YEARS AGO
     Route: 048
  2. RIVOTRIL [Suspect]
     Active Substance: CLONAZEPAM
     Route: 048
  3. CHONDROITIN;GLUCOSAMINE [Concomitant]
     Dates: start: 2012
  4. ESOMEPRAZOLE [Concomitant]
     Active Substance: ESOMEPRAZOLE
     Dates: start: 2007
  5. HYDROCHLOROTHIAZIDE\OLMESARTAN MEDOXOMIL [Concomitant]
     Active Substance: HYDROCHLOROTHIAZIDE\OLMESARTAN MEDOXOMIL
     Dates: start: 2012
  6. BIMATOPROST [Concomitant]
     Active Substance: BIMATOPROST
  7. TIMOLOL MALEATE [Concomitant]
     Active Substance: TIMOLOL MALEATE
  8. BRINZOLAMIDE [Concomitant]
     Active Substance: BRINZOLAMIDE
  9. BRIMONIDINE TARTRATE [Concomitant]
     Active Substance: BRIMONIDINE TARTRATE

REACTIONS (5)
  - Arrhythmia [Recovered/Resolved]
  - COVID-19 [Recovered/Resolved]
  - Poor quality sleep [Recovered/Resolved]
  - Incorrect dose administered [Unknown]
  - Incorrect product administration duration [Unknown]

NARRATIVE: CASE EVENT DATE: 20180101
